FAERS Safety Report 8320960-6 (Version None)
Quarter: 2012Q2

REPORT INFORMATION
  Report Type: 
  Country: None (occurrence: None)
  Receive Date: 20120430
  Receipt Date: 20120424
  Transmission Date: 20120825
  Serious: Yes (Other)
  Sender: FDA-Public Use
  Company Number: PHHY2011CA91150

PATIENT
  Sex: Male

DRUGS (2)
  1. SANDOSTATIN LAR [Suspect]
     Indication: ACROMEGALY
     Dosage: 20 MG, QMO
     Route: 030
     Dates: start: 20111011
  2. SANDOSTATIN [Suspect]
     Indication: ACROMEGALY
     Dosage: 100 UG, ONCE
     Route: 058
     Dates: start: 20110919, end: 20110919

REACTIONS (1)
  - BLOOD PRESSURE ABNORMAL [None]
